FAERS Safety Report 13486546 (Version 1)
Quarter: 2017Q2

REPORT INFORMATION
  Report Type: Report from Study
  Country: CO (occurrence: CO)
  Receive Date: 20170426
  Receipt Date: 20170426
  Transmission Date: 20170830
  Serious: Yes (Hospitalization, Other)
  Sender: FDA-Public Use
  Company Number: PHHY2016CO147566

PATIENT
  Age: 66 Year
  Sex: Male
  Weight: 74 kg

DRUGS (4)
  1. THYROXINE [Concomitant]
     Active Substance: LEVOTHYROXINE
     Indication: PRODUCT USED FOR UNKNOWN INDICATION
     Dosage: 50 MG, UNK
     Route: 065
  2. AFINITOR [Suspect]
     Active Substance: EVEROLIMUS
     Dosage: 5 MG, QD
     Route: 048
     Dates: start: 20161215
  3. LEVOTHYROXINE. [Concomitant]
     Active Substance: LEVOTHYROXINE
     Indication: PRODUCT USED FOR UNKNOWN INDICATION
     Route: 065
  4. AFINITOR [Suspect]
     Active Substance: EVEROLIMUS
     Indication: RENAL CELL CARCINOMA
     Dosage: 10 MG, QD
     Route: 048
     Dates: start: 20160910, end: 201612

REACTIONS (31)
  - Dyspnoea [Unknown]
  - Bilirubin conjugated increased [Unknown]
  - Pyrexia [Unknown]
  - Anal inflammation [Unknown]
  - Glucose urine present [Unknown]
  - Bacterial test positive [Unknown]
  - Dermatitis [Not Recovered/Not Resolved]
  - Oral disorder [Not Recovered/Not Resolved]
  - C-reactive protein increased [Unknown]
  - Leukocytosis [Unknown]
  - Osteolysis [Unknown]
  - Pulmonary mass [Unknown]
  - Metastases to lung [Unknown]
  - Protein total decreased [Unknown]
  - Transaminases increased [Unknown]
  - Blood lactate dehydrogenase increased [Unknown]
  - Blood creatinine increased [Unknown]
  - Hypertension [Unknown]
  - Renal cell carcinoma [Unknown]
  - Haematuria [Unknown]
  - Cough [Unknown]
  - Lymphocyte count decreased [Unknown]
  - Monocyte count increased [Unknown]
  - Lymphadenopathy [Unknown]
  - Prostatic specific antigen increased [Unknown]
  - Pleural effusion [Unknown]
  - Pneumonitis [Unknown]
  - Malignant neoplasm progression [Unknown]
  - Metastases to spine [Unknown]
  - Metastases to bone [Unknown]
  - Neck pain [Unknown]

NARRATIVE: CASE EVENT DATE: 20161001
